FAERS Safety Report 14371204 (Version 1)
Quarter: 2018Q1

REPORT INFORMATION
  Report Type: Spontaneous
  Country: US (occurrence: US)
  Receive Date: 20180109
  Receipt Date: 20180109
  Transmission Date: 20180509
  Serious: Yes (Hospitalization)
  Sender: FDA-Public Use
  Company Number: None

PATIENT
  Age: 80 Year
  Sex: Male

DRUGS (1)
  1. NITROFURANTOIN. [Suspect]
     Active Substance: NITROFURANTOIN
     Indication: URINARY TRACT INFECTION
     Route: 048
     Dates: start: 20170408, end: 20171124

REACTIONS (4)
  - Dyspnoea [None]
  - Asthenia [None]
  - Alveolitis allergic [None]
  - Pulmonary toxicity [None]

NARRATIVE: CASE EVENT DATE: 20171118
